FAERS Safety Report 16446124 (Version 1)
Quarter: 2019Q2

REPORT INFORMATION
  Report Type: Spontaneous
  Country: US (occurrence: US)
  Receive Date: 20190618
  Receipt Date: 20190618
  Transmission Date: 20190711
  Serious: No
  Sender: FDA-Public Use
  Company Number: US-TARO-2019TAR00165

PATIENT
  Sex: Female
  Weight: 52.15 kg

DRUGS (5)
  1. RANITIDINE. [Concomitant]
     Active Substance: RANITIDINE
  2. NORTRIPTYLINE HCL CAPSULES 25 MG [Suspect]
     Active Substance: NORTRIPTYLINE HYDROCHLORIDE
     Indication: SLEEP DISORDER
     Dosage: 25 MG, 1X/DAY AT BEDTIME
     Route: 048
  3. ATENOLOL. [Concomitant]
     Active Substance: ATENOLOL
  4. MULTIVITAMIN [Concomitant]
     Active Substance: VITAMINS
  5. ESTRACE [Concomitant]
     Active Substance: ESTRADIOL

REACTIONS (3)
  - Product odour abnormal [Recovered/Resolved]
  - Throat irritation [Recovered/Resolved]
  - Off label use [Not Recovered/Not Resolved]
